FAERS Safety Report 17195805 (Version 3)
Quarter: 2020Q1

REPORT INFORMATION
  Report Type: Report from Study
  Country: CA (occurrence: CA)
  Receive Date: 20191224
  Receipt Date: 20200212
  Transmission Date: 20200409
  Serious: Yes (Hospitalization)
  Sender: FDA-Public Use
  Company Number: NVSC2019CA012855

PATIENT
  Age: 47 Year
  Sex: Male

DRUGS (4)
  1. COSENTYX [Suspect]
     Active Substance: SECUKINUMAB
     Dosage: 150 MG, QMO
     Route: 058
     Dates: start: 20191201
  2. COSENTYX [Suspect]
     Active Substance: SECUKINUMAB
     Indication: ANKYLOSING SPONDYLITIS
     Dosage: 150 MG, QW
     Route: 058
     Dates: start: 20191004
  3. CELEBREX [Concomitant]
     Active Substance: CELECOXIB
     Indication: PRODUCT USED FOR UNKNOWN INDICATION
     Dosage: UNK
     Route: 065
     Dates: start: 20190403
  4. IBUPROFEN. [Concomitant]
     Active Substance: IBUPROFEN
     Indication: PRODUCT USED FOR UNKNOWN INDICATION
     Route: 065

REACTIONS (17)
  - Pharyngitis [Unknown]
  - Diarrhoea [Unknown]
  - Constipation [Unknown]
  - Dizziness [Unknown]
  - Device malfunction [Unknown]
  - Asthenia [Unknown]
  - Nausea [Unknown]
  - Abdominal pain upper [Unknown]
  - Oropharyngeal pain [Unknown]
  - Pain [Recovering/Resolving]
  - Hypertension [Unknown]
  - Device leakage [Unknown]
  - Abdominal pain [Unknown]
  - Paranasal sinus haemorrhage [Unknown]
  - Incorrect dose administered [Unknown]
  - Irritable bowel syndrome [Unknown]
  - Sinusitis [Unknown]

NARRATIVE: CASE EVENT DATE: 201910
